FAERS Safety Report 25654833 (Version 1)
Quarter: 2025Q3

REPORT INFORMATION
  Report Type: Spontaneous
  Country: EU (occurrence: EU)
  Receive Date: 20250807
  Receipt Date: 20250807
  Transmission Date: 20251021
  Serious: Yes (Other)
  Sender: RANBAXY
  Company Number: EU-SUN PHARMACEUTICAL INDUSTRIES INC-2025R1-521287

PATIENT
  Age: 36 Year
  Sex: Female

DRUGS (3)
  1. METHYLPREDNISOLONE [Suspect]
     Active Substance: METHYLPREDNISOLONE
     Indication: Pericarditis
     Dosage: 0.4 MILLIGRAM/KILOGRAM, DAILY
     Route: 065
  2. INDOMETHACIN [Suspect]
     Active Substance: INDOMETHACIN
     Indication: Pericarditis
     Dosage: 50 MILLIGRAM, TID
     Route: 065
  3. COLCHICINE [Suspect]
     Active Substance: COLCHICINE
     Indication: Pericarditis
     Dosage: 0.5 MILLIGRAM, QD
     Route: 065

REACTIONS (4)
  - Condition aggravated [Unknown]
  - Swelling face [Recovering/Resolving]
  - Mood swings [Recovering/Resolving]
  - Depression [Recovering/Resolving]
